FAERS Safety Report 15439914 (Version 1)
Quarter: 2018Q3

REPORT INFORMATION
  Report Type: Report from Study
  Country: CA (occurrence: CA)
  Receive Date: 20180928
  Receipt Date: 20180928
  Transmission Date: 20181010
  Serious: Yes (Hospitalization)
  Sender: FDA-Public Use
  Company Number: CA-HLSUS-2018-CA-001388

PATIENT
  Age: 75 Year
  Sex: Male

DRUGS (3)
  1. LEVODOPA CR 100/25 MG [Concomitant]
     Dosage: 2 TAB AT BEDTIME
     Route: 048
  2. CLOZARIL [Suspect]
     Active Substance: CLOZAPINE
     Indication: PARKINSON^S DISEASE PSYCHOSIS
     Dosage: 25MG EVERY MORNING AND 75MG DAILY AT BEDTIME
     Route: 048
     Dates: start: 20170330
  3. LEVODOPA 250/25MG [Concomitant]
     Dosage: 6 TIMES DAILY
     Route: 048
     Dates: start: 2013

REACTIONS (3)
  - Varicella [Recovering/Resolving]
  - Acute respiratory distress syndrome [Recovering/Resolving]
  - Encephalitis [Recovering/Resolving]

NARRATIVE: CASE EVENT DATE: 20180810
